FAERS Safety Report 20714570 (Version 3)
Quarter: 2022Q2

REPORT INFORMATION
  Report Type: Report from Study
  Country: CN (occurrence: CN)
  Receive Date: 20220415
  Receipt Date: 20220614
  Transmission Date: 20220721
  Serious: Yes (Death, Hospitalization, Other)
  Sender: FDA-Public Use
  Company Number: CN-AMGEN-CHNSL2022027714

PATIENT
  Age: 69 Year
  Sex: Male

DRUGS (2)
  1. XGEVA [Suspect]
     Active Substance: DENOSUMAB
     Indication: Lung cancer metastatic
     Dosage: 120 MILLIGRAM, QMO
     Route: 065
     Dates: start: 20210723
  2. XGEVA [Suspect]
     Active Substance: DENOSUMAB
     Indication: Metastases to bone

REACTIONS (5)
  - Drug tolerance [Unknown]
  - Lung cancer metastatic [Fatal]
  - Toothache [Unknown]
  - Blood calcium decreased [Unknown]
  - Nasopharyngitis [Not Recovered/Not Resolved]
